FAERS Safety Report 17801322 (Version 1)
Quarter: 2020Q2

REPORT INFORMATION
  Report Type: Spontaneous
  Country: US (occurrence: US)
  Receive Date: 20200519
  Receipt Date: 20200519
  Transmission Date: 20200714
  Serious: Yes (Other)
  Sender: FDA-Public Use
  Company Number: US-AUROBINDO-AUR-APL-2020-024449

PATIENT
  Age: 63 Year
  Sex: Male

DRUGS (4)
  1. CARBOPLATIN. [Suspect]
     Active Substance: CARBOPLATIN
     Indication: URETHRAL CANCER METASTATIC
  2. PACLITAXEL. [Suspect]
     Active Substance: PACLITAXEL
     Indication: URETHRAL CANCER METASTATIC
     Dosage: UNK , 4 CYCLICAL
     Route: 065
  3. PACLITAXEL. [Suspect]
     Active Substance: PACLITAXEL
     Indication: PENIS CARCINOMA METASTATIC
  4. CARBOPLATIN. [Suspect]
     Active Substance: CARBOPLATIN
     Indication: PENIS CARCINOMA METASTATIC
     Dosage: UNK, 4 CYCLICAL
     Route: 065

REACTIONS (2)
  - Neuropathy peripheral [Unknown]
  - Anaemia [Unknown]
